FAERS Safety Report 9881746 (Version 3)
Quarter: 2014Q1

REPORT INFORMATION
  Report Type: Spontaneous
  Country: GB (occurrence: GB)
  Receive Date: 20140207
  Receipt Date: 20140307
  Transmission Date: 20141002
  Serious: Yes (Other)
  Sender: FDA-Public Use
  Company Number: PHFR2014GB001142

PATIENT
  Sex: Female

DRUGS (6)
  1. CICLOSPORIN [Suspect]
     Indication: CHRONIC SPONTANEOUS URTICARIA
     Dosage: UNK UKN, UNK
     Route: 065
     Dates: start: 201310
  2. CETIRIZINE [Suspect]
     Indication: CHRONIC SPONTANEOUS URTICARIA
     Dosage: 10 MG, DAILY
  3. RANITIDINE [Suspect]
     Indication: CHRONIC SPONTANEOUS URTICARIA
     Dosage: 150 MG, BID
  4. MONTELUKAST SODIUM [Suspect]
     Indication: CHRONIC SPONTANEOUS URTICARIA
     Dosage: 10 MG, NOCTE
     Dates: start: 201309
  5. FEXOFENADINE [Suspect]
     Dosage: 360 MG, QD
     Route: 065
  6. HYDROXYZINE [Suspect]
     Indication: CHRONIC SPONTANEOUS URTICARIA
     Dosage: 50 MG, NOCTE

REACTIONS (6)
  - Condition aggravated [Recovering/Resolving]
  - Angioedema [Unknown]
  - Chronic spontaneous urticaria [Recovering/Resolving]
  - Pruritus [Unknown]
  - Insomnia [Unknown]
  - Drug ineffective [Unknown]
